FAERS Safety Report 5650685-7 (Version None)
Quarter: 2008Q1

REPORT INFORMATION
  Report Type: 
  Country: None (occurrence: None)
  Receive Date: 20080305
  Receipt Date: 20080305
  Transmission Date: 20080703
  Serious: Yes (Life-Threatening, Hospitalization)
  Sender: FDA-Public Use
  Company Number: None

PATIENT
  Age: 40 Year
  Sex: Female
  Weight: 80 kg

DRUGS (12)
  1. HEPARIN [Suspect]
     Indication: THROMBOSIS PROPHYLAXIS
     Dates: start: 20080220, end: 20080226
  2. ALBUTEROL [Concomitant]
  3. PROPOFOL [Concomitant]
  4. DECADRON [Concomitant]
  5. HYDRALAZINE HCL [Concomitant]
  6. NIMODIPINE [Concomitant]
  7. IPRATROPIUM BROMIDE [Concomitant]
  8. LABETOLOL [Concomitant]
  9. PHENYTOIN [Concomitant]
  10. PIPERACILLIN AND TAZOBACTAM [Concomitant]
  11. RANITIDINE [Concomitant]
  12. VITAMIN K [Concomitant]

REACTIONS (1)
  - HEPARIN-INDUCED THROMBOCYTOPENIA [None]
